FAERS Safety Report 9837563 (Version 1)
Quarter: 2013Q4

REPORT INFORMATION
  Report Type: Spontaneous
  Country: US (occurrence: None)
  Receive Date: 20131127
  Receipt Date: 20131127
  Transmission Date: 20140711
  Serious: Yes (Other)
  Sender: FDA-Public Use
  Company Number: 223910

PATIENT
  Sex: Male

DRUGS (1)
  1. PICATO [Suspect]
     Route: 048
     Dates: start: 20130909, end: 20130911

REACTIONS (7)
  - Application site erythema [None]
  - Application site irritation [None]
  - Application site scab [None]
  - Drug dispensing error [None]
  - Accidental overdose [None]
  - Incorrect drug administration duration [None]
  - Incorrect dose administered [None]
